FAERS Safety Report 9343651 (Version 3)
Quarter: 2013Q3

REPORT INFORMATION
  Report Type: Spontaneous
  Country: AR (occurrence: AR)
  Receive Date: 20130612
  Receipt Date: 20130708
  Transmission Date: 20140515
  Serious: Yes (Other)
  Sender: FDA-Public Use
  Company Number: AR-ROCHE-1235302

PATIENT
  Age: 57 Year
  Sex: Female

DRUGS (4)
  1. LUCENTIS [Suspect]
     Indication: EXUDATIVE RETINOPATHY
     Route: 050
     Dates: start: 201002
  2. LUCENTIS [Suspect]
     Route: 050
     Dates: start: 20110407
  3. LUCENTIS [Suspect]
     Route: 050
     Dates: start: 2012
  4. LUCENTIS [Suspect]
     Route: 050
     Dates: start: 20130522, end: 20130522

REACTIONS (4)
  - Depression [Recovered/Resolved]
  - Visual acuity reduced [Recovering/Resolving]
  - Ocular discomfort [Unknown]
  - Drug ineffective [Unknown]
